FAERS Safety Report 14879922 (Version 1)
Quarter: 2018Q2

REPORT INFORMATION
  Report Type: Report from Study
  Country: DE (occurrence: DE)
  Receive Date: 20180511
  Receipt Date: 20180511
  Transmission Date: 20180711
  Serious: Yes (Congenital Anomaly, Other)
  Sender: FDA-Public Use
  Company Number: DE-SUN PHARMACEUTICAL INDUSTRIES LTD-2018RR-172537

PATIENT
  Sex: Female
  Weight: .88 kg

DRUGS (2)
  1. DICLOFENAC [Suspect]
     Active Substance: DICLOFENAC
     Indication: PRODUCT USED FOR UNKNOWN INDICATION
     Route: 064
  2. ETORICOXIB [Suspect]
     Active Substance: ETORICOXIB
     Indication: PAIN
     Route: 064

REACTIONS (6)
  - Foetal exposure during pregnancy [Unknown]
  - Pyelocaliectasis [Unknown]
  - Pulmonary artery stenosis congenital [Unknown]
  - Live birth [Unknown]
  - Amniotic cavity infection [Unknown]
  - Atrial septal defect [Unknown]
